FAERS Safety Report 8473143-3 (Version None)
Quarter: 2012Q2

REPORT INFORMATION
  Report Type: 
  Country: None (occurrence: None)
  Receive Date: 20120627
  Receipt Date: 20120621
  Transmission Date: 20120825
  Serious: Yes (Death, Hospitalization)
  Sender: FDA-Public Use
  Company Number: FR-PFIZER INC-2012149331

PATIENT
  Age: 91 Year
  Sex: Female

DRUGS (8)
  1. EXELON [Suspect]
     Indication: DEMENTIA ALZHEIMER'S TYPE
     Dosage: 1 DF, 1X/DAY, 9.5 MG
     Route: 062
     Dates: start: 20120410, end: 20120511
  2. ROCEPHIN [Suspect]
     Indication: LUNG INFILTRATION
     Dosage: 1 G, UNK
     Route: 058
     Dates: start: 20120427
  3. PARACETAMOL [Concomitant]
     Dosage: 1 G, 3X/DAY
     Route: 048
     Dates: start: 20120410
  4. AMLODIPINE [Concomitant]
     Dosage: 5 MG, 1X/DAY
     Route: 048
     Dates: end: 20120511
  5. LEVOTHYROXINE SODIUM [Concomitant]
     Dosage: 75 UG, 1X/DAY
     Route: 048
     Dates: end: 20120511
  6. OXAZEPAM [Concomitant]
     Dosage: 10 MG, 1X/DAY
     Route: 048
  7. ZOLOFT [Suspect]
     Indication: DEPRESSION
     Dosage: 75 MG, 1X/DAY
     Route: 048
     Dates: start: 20120410, end: 20120511
  8. IMOVANE [Suspect]
     Dosage: 3.75 MG, 1X/DAY
     Route: 048
     Dates: start: 20120410, end: 20120511

REACTIONS (3)
  - ACUTE CORONARY SYNDROME [None]
  - LUNG INFECTION [None]
  - LUNG DISORDER [None]
